FAERS Safety Report 5130097-5 (Version None)
Quarter: 2006Q4

REPORT INFORMATION
  Report Type: 
  Country: None (occurrence: None)
  Receive Date: 20061013
  Receipt Date: 20061003
  Transmission Date: 20070319
  Serious: Yes (Hospitalization)
  Sender: FDA-Public Use
  Company Number: 2006BI010644

PATIENT
  Age: 48 Year
  Sex: Female
  Weight: 79 kg

DRUGS (2)
  1. AVONEX [Suspect]
     Indication: MULTIPLE SCLEROSIS
     Dosage: SEE IMAGE
     Dates: start: 20060726, end: 20060726
  2. AVONEX [Suspect]
     Indication: MULTIPLE SCLEROSIS
     Dosage: SEE IMAGE
     Dates: start: 20060830, end: 20060830

REACTIONS (8)
  - BLOOD POTASSIUM DECREASED [None]
  - HEAD BANGING [None]
  - HEADACHE [None]
  - NAUSEA [None]
  - SYNCOPE [None]
  - TOOTH LOSS [None]
  - URINARY TRACT INFECTION [None]
  - VOMITING [None]
